FAERS Safety Report 25095448 (Version 2)
Quarter: 2025Q1

REPORT INFORMATION
  Report Type: Report from Study
  Country: IT (occurrence: IT)
  Receive Date: 20250319
  Receipt Date: 20250324
  Transmission Date: 20250408
  Serious: Yes (Other)
  Sender: ABBVIE
  Company Number: IT-ABBVIE-6183710

PATIENT
  Age: 72 Year
  Sex: Male

DRUGS (18)
  1. VENETOCLAX [Suspect]
     Active Substance: VENETOCLAX
     Indication: Acute myeloid leukaemia
     Route: 048
     Dates: start: 20241115, end: 20241115
  2. VENETOCLAX [Suspect]
     Active Substance: VENETOCLAX
     Indication: Acute myeloid leukaemia
     Route: 048
     Dates: start: 20241116, end: 20241211
  3. VENETOCLAX [Suspect]
     Active Substance: VENETOCLAX
     Indication: Acute myeloid leukaemia
     Route: 048
     Dates: start: 20241114, end: 20241114
  4. EPLERENONE [Concomitant]
     Active Substance: EPLERENONE
     Indication: Acute coronary syndrome
     Route: 048
     Dates: start: 2024
  5. AZACITIDINE [Suspect]
     Active Substance: AZACITIDINE
     Indication: Acute myeloid leukaemia
     Route: 065
     Dates: start: 20241114, end: 20241122
  6. LAMIVUDINE [Concomitant]
     Active Substance: LAMIVUDINE
     Indication: Antiviral prophylaxis
     Route: 048
     Dates: start: 20241111
  7. ALLOPURINOL [Concomitant]
     Active Substance: ALLOPURINOL
     Indication: Prophylaxis
     Route: 048
     Dates: start: 20241030
  8. ATORVASTATIN [Concomitant]
     Active Substance: ATORVASTATIN
     Indication: Dyslipidaemia
     Route: 048
     Dates: start: 2020, end: 20241113
  9. TIMOLOL MALEATE [Concomitant]
     Active Substance: TIMOLOL MALEATE
     Indication: Glaucoma
     Dates: start: 2023
  10. EZETIMIBE [Concomitant]
     Active Substance: EZETIMIBE
     Indication: Dyslipidaemia
     Route: 048
     Dates: start: 2020, end: 20241113
  11. ASPIRIN [Concomitant]
     Active Substance: ASPIRIN
     Indication: Aortic aneurysm
     Route: 048
     Dates: start: 2011, end: 20241030
  12. BISOPROLOL [Concomitant]
     Active Substance: BISOPROLOL
     Indication: Acute coronary syndrome
     Route: 048
     Dates: start: 2020
  13. PANTOPRAZOLE [Concomitant]
     Active Substance: PANTOPRAZOLE
     Indication: Gastrointestinal disorder prophylaxis
     Route: 048
     Dates: start: 2011
  14. VALSARTAN [Concomitant]
     Active Substance: VALSARTAN
     Indication: Acute coronary syndrome
     Route: 048
     Dates: start: 2020
  15. COVID-19 vaccine [Concomitant]
     Indication: COVID-19 immunisation
  16. COVID-19 vaccine [Concomitant]
     Indication: COVID-19 immunisation
  17. COVID-19 vaccine [Concomitant]
     Indication: COVID-19 immunisation
  18. COVID-19 vaccine [Concomitant]
     Indication: COVID-19 immunisation
     Dates: end: 202311

REACTIONS (1)
  - Pancytopenia [Not Recovered/Not Resolved]

NARRATIVE: CASE EVENT DATE: 20241213
